FAERS Safety Report 25014649 (Version 4)
Quarter: 2025Q2

REPORT INFORMATION
  Report Type: Spontaneous
  Country: US (occurrence: US)
  Receive Date: 20250226
  Receipt Date: 20250605
  Transmission Date: 20250716
  Serious: Yes (Disabling, Other)
  Sender: PFIZER
  Company Number: US-PFIZER INC-202500042693

PATIENT
  Age: 16 Year
  Sex: Male
  Weight: 52.16 kg

DRUGS (4)
  1. OXBRYTA [Suspect]
     Active Substance: VOXELOTOR
     Indication: Sickle cell anaemia
     Dosage: 5 TABLETS IN 25ML OF LIQUID OR DRINK ONCE A DAY
  2. OXBRYTA [Suspect]
     Active Substance: VOXELOTOR
     Route: 048
     Dates: start: 202310, end: 202401
  3. OXBRYTA [Suspect]
     Active Substance: VOXELOTOR
     Route: 048
     Dates: start: 202407, end: 20240926
  4. HYDROXYUREA [Concomitant]
     Active Substance: HYDROXYUREA
     Indication: Sickle cell disease

REACTIONS (2)
  - Rash [Recovering/Resolving]
  - Bone density abnormal [Recovering/Resolving]

NARRATIVE: CASE EVENT DATE: 20241101
